FAERS Safety Report 5085916-8 (Version None)
Quarter: 2006Q3

REPORT INFORMATION
  Report Type: 
  Country: None (occurrence: None)
  Receive Date: 20060817
  Receipt Date: 20060802
  Transmission Date: 20061208
  Serious: Yes (Other)
  Sender: FDA-Public Use
  Company Number: 2006097588

PATIENT
  Sex: Male

DRUGS (1)
  1. LYRICA [Suspect]
     Indication: NEURALGIA
     Dosage: 150 MG (75 MG, 2 IN 1 D)
     Dates: start: 20060728

REACTIONS (5)
  - AMNESIA [None]
  - APHASIA [None]
  - DISORIENTATION [None]
  - INCOHERENT [None]
  - URINARY INCONTINENCE [None]
